FAERS Safety Report 15642039 (Version 1)
Quarter: 2018Q4

REPORT INFORMATION
  Report Type: Spontaneous
  Country: FR (occurrence: FR)
  Receive Date: 20181121
  Receipt Date: 20181121
  Transmission Date: 20190205
  Serious: Yes (Other)
  Sender: FDA-Public Use
  Company Number: FR-AUROBINDO-AUR-APL-2018-052261

PATIENT
  Age: 67 Year
  Sex: Female

DRUGS (2)
  1. RISEDRONATE ARROW 35 MG FILM COATED TABLETS [Suspect]
     Active Substance: RISEDRONATE SODIUM
     Indication: OSTEOPOROSIS
     Dosage: 35 MILLIGRAM, EVERY WEEK
     Route: 048
     Dates: start: 201801, end: 20181015
  2. CALCIUM + VITAMIN D3 [Concomitant]
     Active Substance: CALCIUM CARBONATE\CHOLECALCIFEROL
     Indication: PRODUCT USED FOR UNKNOWN INDICATION
     Dosage: UNK
     Route: 065
     Dates: start: 20181023

REACTIONS (6)
  - Fibromyalgia [Recovered/Resolved]
  - Hypoaesthesia [Not Recovered/Not Resolved]
  - Dyshidrotic eczema [Recovering/Resolving]
  - Oral candidiasis [Not Recovered/Not Resolved]
  - Tongue ulceration [Recovered/Resolved]
  - Diarrhoea [Recovered/Resolved]

NARRATIVE: CASE EVENT DATE: 201809
